FAERS Safety Report 9928623 (Version 1)
Quarter: 2014Q1

REPORT INFORMATION
  Report Type: Spontaneous
  Country: US (occurrence: US)
  Receive Date: 20140227
  Receipt Date: 20140227
  Transmission Date: 20141002
  Serious: Yes (Other)
  Sender: FDA-Public Use
  Company Number: US-PFIZER INC-2014056125

PATIENT
  Age: 71 Year
  Sex: Female
  Weight: 87.98 kg

DRUGS (4)
  1. CELEBREX [Suspect]
     Indication: OSTEOARTHRITIS
     Dosage: 200 MG, 2X/DAY
  2. CELEBREX [Suspect]
     Indication: OSTEOPOROSIS
  3. CELEBREX [Suspect]
     Indication: FIBROMYALGIA
  4. LASIX [Concomitant]
     Indication: DIURETIC THERAPY
     Dosage: 40 MG, 1X/DAY

REACTIONS (1)
  - Gallbladder disorder [Unknown]
